FAERS Safety Report 8220511-0 (Version None)
Quarter: 2012Q1

REPORT INFORMATION
  Report Type: 
  Country: None (occurrence: None)
  Receive Date: 20120320
  Receipt Date: 20120312
  Transmission Date: 20120608
  Serious: Yes (Hospitalization)
  Sender: FDA-Public Use
  Company Number: US-BAYER-2011-063023

PATIENT
  Age: 37 Year
  Sex: Female
  Weight: 68 kg

DRUGS (19)
  1. GABAPENTIN [Concomitant]
     Dosage: 300 MG, UNK
     Route: 048
  2. OMEPRAZOLE [Concomitant]
     Dosage: 20 MG, UNK
     Route: 048
  3. ALPRAZOLAM [Concomitant]
     Dosage: 1 MG, UNK
  4. SUCRALFATE [Concomitant]
     Dosage: 1 MG, UNK
  5. DROSPIRENONE AND ETHINYL ESTRADIOL [Suspect]
     Dosage: 28 TABLETS
     Dates: start: 20110114
  6. DROSPIRENONE AND ETHINYL ESTRADIOL [Concomitant]
     Dosage: 28 TABLETS
     Dates: start: 20110419
  7. YASMIN [Suspect]
     Dosage: UNK
     Dates: start: 20040101, end: 20090101
  8. VICODIN [Concomitant]
     Dosage: 5/500 MG
  9. DROSPIRENONE AND ETHINYL ESTRADIOL [Suspect]
     Dosage: UNK
     Dates: start: 20040101, end: 20090101
  10. MECLIZINE [Concomitant]
     Dosage: 25 MG, UNK
  11. DROSPIRENONE AND ETHINYL ESTRADIOL [Suspect]
     Dosage: 28 TABLETS
     Dates: start: 20100924
  12. HYDROCHLOROTHIAZIDE [Concomitant]
     Dosage: UNK
     Route: 048
     Dates: start: 19990101
  13. ALLOPURINOL [Concomitant]
     Dosage: 100 MG, UNK
     Route: 048
  14. VITAMIN TAB [Concomitant]
     Route: 048
  15. DROSPIRENONE AND ETHINYL ESTRADIOL [Suspect]
     Dosage: 84 TABLETS
     Dates: start: 20110913, end: 20111203
  16. YAZ [Suspect]
     Dosage: UNK
     Dates: start: 20040101, end: 20090101
  17. CYMBALTA [Concomitant]
     Dosage: 60 MG, UNK
     Route: 048
     Dates: start: 20080101, end: 20100101
  18. AMITRIPTYLINE HCL [Concomitant]
     Dosage: 50 MG, UNK
     Route: 048
  19. DROSPIRENONE AND ETHINYL ESTRADIOL [Concomitant]
     Indication: CONTRACEPTION
     Dosage: 28 TABLETS
     Dates: start: 20101227

REACTIONS (4)
  - CHOLECYSTITIS CHRONIC [None]
  - CHOLECYSTECTOMY [None]
  - PAIN [None]
  - INJURY [None]
